FAERS Safety Report 9769090 (Version 1)
Quarter: 2013Q4

REPORT INFORMATION
  Report Type: Spontaneous
  Country: BR (occurrence: BR)
  Receive Date: 20131218
  Receipt Date: 20131218
  Transmission Date: 20140711
  Serious: Yes (Other)
  Sender: FDA-Public Use
  Company Number: BR-JNJFOC-20131209547

PATIENT
  Sex: Female

DRUGS (1)
  1. SIMPONI [Suspect]
     Indication: PRODUCT USED FOR UNKNOWN INDICATION
     Route: 058

REACTIONS (1)
  - Herpes zoster [Unknown]
